FAERS Safety Report 18579751 (Version 1)
Quarter: 2020Q4

REPORT INFORMATION
  Report Type: Spontaneous
  Country: GB (occurrence: GB)
  Receive Date: 20201204
  Receipt Date: 20201204
  Transmission Date: 20210114
  Serious: Yes (Hospitalization, Other)
  Sender: FDA-Public Use
  Company Number: GB-BAUSCH-BL-2020-034527

PATIENT
  Age: 77 Year
  Sex: Male
  Weight: 85 kg

DRUGS (2)
  1. BRIMONIDINE [Suspect]
     Active Substance: BRIMONIDINE TARTRATE
     Indication: INTRAOCULAR LENS IMPLANT
     Dosage: BOTH EYES TWICE A DAY
     Route: 047
     Dates: start: 20200708, end: 20201008
  2. GANFORT [Concomitant]
     Active Substance: BIMATOPROST\TIMOLOL
     Indication: PRODUCT USED FOR UNKNOWN INDICATION
     Dosage: IN EACH EYE: 0.3MG/ML / 5MG/ML
     Route: 047
     Dates: start: 20200820, end: 20201104

REACTIONS (1)
  - Eczema [Recovered/Resolved]

NARRATIVE: CASE EVENT DATE: 20201008
